FAERS Safety Report 7541680-1 (Version None)
Quarter: 2011Q2

REPORT INFORMATION
  Report Type: 
  Country: None (occurrence: None)
  Receive Date: 20110613
  Receipt Date: 20110530
  Transmission Date: 20111010
  Serious: Yes (Hospitalization, Other)
  Sender: FDA-Public Use
  Company Number: IL-RANBAXY-2011RR-44876

PATIENT
  Age: 58 Year
  Sex: Male
  Weight: 75 kg

DRUGS (1)
  1. SIMVASTATIN [Suspect]
     Dosage: 80 MG, UNK

REACTIONS (1)
  - TENDON RUPTURE [None]
